FAERS Safety Report 9331479 (Version 1)
Quarter: 2013Q2

REPORT INFORMATION
  Report Type: Spontaneous
  Country: US (occurrence: US)
  Receive Date: 20130605
  Receipt Date: 20130605
  Transmission Date: 20140414
  Serious: No
  Sender: FDA-Public Use
  Company Number: US-PFIZER INC-2013169323

PATIENT
  Age: 67 Year
  Sex: Male
  Weight: 71.66 kg

DRUGS (3)
  1. LYRICA [Suspect]
     Dosage: 50 MG, 2X/DAY
     Route: 048
     Dates: start: 201302, end: 2013
  2. LYRICA [Suspect]
     Dosage: 100 MG, 2X/DAY
     Route: 048
     Dates: start: 2013, end: 2013
  3. LYRICA [Suspect]
     Dosage: 150 MG, 2X/DAY
     Route: 048
     Dates: start: 2013

REACTIONS (3)
  - Bezoar [Unknown]
  - Gastric disorder [Not Recovered/Not Resolved]
  - Abdominal distension [Not Recovered/Not Resolved]
